FAERS Safety Report 25177600 (Version 1)
Quarter: 2025Q2

REPORT INFORMATION
  Report Type: Spontaneous
  Country: CA (occurrence: CA)
  Receive Date: 20250409
  Receipt Date: 20250409
  Transmission Date: 20250717
  Serious: Yes (Other)
  Sender: CELLTRION
  Company Number: CA-PFIZER INC-202500072323

PATIENT

DRUGS (1)
  1. INFLECTRA [Suspect]
     Active Substance: INFLIXIMAB-DYYB
     Indication: Ankylosing spondylitis
     Route: 042
     Dates: start: 20250305

REACTIONS (4)
  - Head injury [Recovering/Resolving]
  - Wound infection [Recovering/Resolving]
  - Arthropod bite [Recovering/Resolving]
  - Infected bite [Recovering/Resolving]
